FAERS Safety Report 17256829 (Version 1)
Quarter: 2020Q1

REPORT INFORMATION
  Report Type: Spontaneous
  Country: US (occurrence: US)
  Receive Date: 20200110
  Receipt Date: 20200110
  Transmission Date: 20200409
  Serious: No
  Sender: FDA-Public Use
  Company Number: US-TEVA-2020-US-1168178

PATIENT

DRUGS (1)
  1. METFORMIN HYDROCHLORIDE TEVA [Suspect]
     Active Substance: METFORMIN HYDROCHLORIDE
     Dosage: EXTENDED RELEASE TABLET 500MG AND 1000MG
     Route: 065

REACTIONS (1)
  - Abdominal discomfort [Unknown]
